FAERS Safety Report 5261905-5 (Version None)
Quarter: 2007Q1

REPORT INFORMATION
  Report Type: 
  Country: None (occurrence: None)
  Receive Date: 20070310
  Receipt Date: 20070228
  Transmission Date: 20070707
  Serious: Yes (Hospitalization)
  Sender: FDA-Public Use
  Company Number: 2006UW25455

PATIENT
  Sex: Female
  Weight: 111.4 kg

DRUGS (8)
  1. SEROQUEL [Suspect]
     Indication: DEPRESSION
     Route: 048
     Dates: start: 20010101
  2. HALDOL [Concomitant]
  3. RISPERDAL [Concomitant]
  4. STELAZINE [Concomitant]
  5. THORAZINE [Concomitant]
  6. SYMBYAX [Concomitant]
  7. ZYPREXA [Concomitant]
  8. WELLBUTRIN [Concomitant]

REACTIONS (2)
  - DIABETES MELLITUS [None]
  - DIABETIC COMA [None]
